FAERS Safety Report 8295061-6 (Version None)
Quarter: 2012Q2

REPORT INFORMATION
  Report Type: 
  Country: None (occurrence: None)
  Receive Date: 20120418
  Receipt Date: 20120409
  Transmission Date: 20120825
  Serious: Yes (Hospitalization)
  Sender: FDA-Public Use
  Company Number: US-ASTRAZENECA-2011SE04121

PATIENT
  Age: 43 Year
  Sex: Male
  Weight: 113.4 kg

DRUGS (20)
  1. SEROQUEL [Suspect]
     Indication: SLEEP DISORDER
     Route: 048
  2. SEROQUEL [Suspect]
     Dosage: TAKING HALF HIS DOSE
     Route: 048
  3. SEROQUEL [Suspect]
     Dosage: TAKING HALF HIS DOSE
     Route: 048
  4. SEROQUEL [Suspect]
     Indication: BIPOLAR DISORDER
     Route: 048
  5. SEROQUEL [Suspect]
     Dosage: TAKING HALF HIS DOSE
     Route: 048
  6. SEROQUEL [Suspect]
     Route: 048
  7. VENLAFAXINE [Concomitant]
  8. MELOXICAM [Concomitant]
  9. SEROQUEL [Suspect]
     Route: 048
  10. ESOMEPRAZOLE MAGNESIUM [Concomitant]
  11. LISINOPRIL [Concomitant]
  12. METHOCARBEMOL [Concomitant]
  13. OXCARBAZEPINE [Concomitant]
  14. NABUMETONE [Concomitant]
  15. SEROQUEL [Suspect]
     Indication: DEPRESSION
     Route: 048
  16. SEROQUEL [Suspect]
     Route: 048
  17. CARVEDILOL [Concomitant]
  18. SIMVASTATIN [Concomitant]
  19. HYDRO OXYZINE PAM [Concomitant]
  20. HYDROCODONE [Concomitant]

REACTIONS (13)
  - WEIGHT DECREASED [None]
  - MALAISE [None]
  - CHEST PAIN [None]
  - UPPER RESPIRATORY TRACT INFECTION [None]
  - CARDIAC DISORDER [None]
  - ASTHENIA [None]
  - INTENTIONAL DRUG MISUSE [None]
  - NAUSEA [None]
  - MEMORY IMPAIRMENT [None]
  - LIGAMENT SPRAIN [None]
  - LETHARGY [None]
  - SLUGGISHNESS [None]
  - ABDOMINAL PAIN UPPER [None]
